FAERS Safety Report 12170062 (Version 1)
Quarter: 2016Q1

REPORT INFORMATION
  Report Type: Spontaneous
  Country: US (occurrence: US)
  Receive Date: 20160311
  Receipt Date: 20160311
  Transmission Date: 20160526
  Serious: No
  Sender: FDA-Public Use
  Company Number: US-BIOGEN-2013BI079748

PATIENT
  Age: 56 Year
  Sex: Female

DRUGS (1)
  1. TECFIDERA [Suspect]
     Active Substance: DIMETHYL FUMARATE
     Indication: MULTIPLE SCLEROSIS
     Route: 048
     Dates: start: 20130711, end: 20130810

REACTIONS (7)
  - Diarrhoea [Recovered/Resolved]
  - Abdominal pain upper [Unknown]
  - Retching [Recovered/Resolved]
  - Pruritus [Recovered/Resolved]
  - Haematemesis [Recovered/Resolved]
  - Feeling abnormal [Unknown]
  - Vomiting [Recovered/Resolved]

NARRATIVE: CASE EVENT DATE: 20130805
